FAERS Safety Report 7006375-1 (Version None)
Quarter: 2010Q3

REPORT INFORMATION
  Report Type: 
  Country: None (occurrence: None)
  Receive Date: 20100909
  Receipt Date: 20100831
  Transmission Date: 20110219
  Serious: Yes (Hospitalization)
  Sender: FDA-Public Use
  Company Number: 2010US005195

PATIENT
  Age: 74 Year
  Sex: Male
  Weight: 67.1 kg

DRUGS (13)
  1. ALOXI [Suspect]
     Indication: PROPHYLAXIS OF NAUSEA AND VOMITING
     Dates: start: 20100716
  2. DOCETAXEL [Suspect]
     Indication: PROSTATE CANCER
     Dosage: 75 MG/M2, QD
     Dates: start: 20100716, end: 20100716
  3. CC-5013/PLACEBO (LENALIDOMIDE/PLACEBO) [Suspect]
     Indication: PROSTATE CANCER
     Dosage: 25 MG, QD, ORAL
     Route: 048
     Dates: start: 20100716
  4. PREDNISOLONE ACETATE [Suspect]
     Indication: PROSTATE CANCER
     Dosage: 5 MG, BID
     Dates: start: 20100716
  5. NORVASC [Concomitant]
  6. ASPIRIN [Concomitant]
  7. COENZYME Q10 [Concomitant]
  8. CRESTOR [Concomitant]
  9. PLAVIX [Concomitant]
  10. TRICOR (FENOFIBRATE) TABLET [Concomitant]
  11. MILK OF MAGNESIA TAB [Concomitant]
  12. OMEPRAZOLE [Concomitant]
  13. ATENOLOL [Concomitant]

REACTIONS (9)
  - BLOOD PRESSURE INCREASED [None]
  - CONSTIPATION [None]
  - DIARRHOEA [None]
  - DIVERTICULITIS [None]
  - DIZZINESS [None]
  - HAEMATOCRIT DECREASED [None]
  - HAEMOGLOBIN DECREASED [None]
  - LOSS OF CONSCIOUSNESS [None]
  - RECTAL HAEMORRHAGE [None]
